FAERS Safety Report 8029664-0 (Version None)
Quarter: 2012Q1

REPORT INFORMATION
  Report Type: 
  Country: None (occurrence: None)
  Receive Date: 20120109
  Receipt Date: 20111226
  Transmission Date: 20120608
  Serious: Yes (Other)
  Sender: FDA-Public Use
  Company Number: JP-PFIZER INC-2012004602

PATIENT
  Age: 75 Year
  Sex: Male

DRUGS (2)
  1. CARVEDILOL [Concomitant]
  2. CELECOXIB [Suspect]
     Dosage: 100 MG, 2X/DAY
     Route: 048

REACTIONS (2)
  - ARRHYTHMIA [None]
  - BLOOD PRESSURE INCREASED [None]
